FAERS Safety Report 17061034 (Version 4)
Quarter: 2020Q1

REPORT INFORMATION
  Report Type: Spontaneous
  Country: US (occurrence: US)
  Receive Date: 20191121
  Receipt Date: 20200213
  Transmission Date: 20200409
  Serious: No
  Sender: FDA-Public Use
  Company Number: US-SA-2019SA320426

PATIENT
  Age: 67 Year
  Sex: Female

DRUGS (2)
  1. KEVZARA [Suspect]
     Active Substance: SARILUMAB
     Dosage: 200 MG, QOW
     Route: 058
     Dates: start: 201909, end: 2019
  2. KEVZARA [Suspect]
     Active Substance: SARILUMAB
     Dosage: 200 MG, QOW
     Route: 058
     Dates: start: 2019

REACTIONS (6)
  - White blood cell count decreased [Unknown]
  - Blood potassium decreased [Unknown]
  - Hypersensitivity [Unknown]
  - Injection site swelling [Unknown]
  - Rhinorrhoea [Unknown]
  - Injection site erythema [Unknown]
